FAERS Safety Report 9460477 (Version 1)
Quarter: 2013Q3

REPORT INFORMATION
  Report Type: Spontaneous
  Country: US (occurrence: US)
  Receive Date: 20130815
  Receipt Date: 20130815
  Transmission Date: 20140515
  Serious: No
  Sender: FDA-Public Use
  Company Number: US-ELI_LILLY_AND_COMPANY-US201308003805

PATIENT
  Sex: Female

DRUGS (3)
  1. ADCIRCA [Suspect]
  2. LETAIRIS [Suspect]
     Dosage: 10 MG, QD
     Dates: start: 20120530
  3. REMODULIN [Concomitant]
     Dosage: UNK

REACTIONS (1)
  - Visual impairment [Unknown]
